FAERS Safety Report 19134154 (Version 1)
Quarter: 2021Q2

REPORT INFORMATION
  Report Type: Spontaneous
  Country: US (occurrence: US)
  Receive Date: 20210413
  Receipt Date: 20210413
  Transmission Date: 20210717
  Serious: Yes (Other)
  Sender: FDA-Public Use
  Company Number: None

PATIENT
  Age: 38 Year
  Sex: Female
  Weight: 74.84 kg

DRUGS (2)
  1. MIRENA [Suspect]
     Active Substance: LEVONORGESTREL
     Dates: start: 20161129, end: 20170510
  2. WOMEN^S DAILY VITAMIN [Concomitant]

REACTIONS (3)
  - Device dislocation [None]
  - Pain [None]
  - Uterine atrophy [None]

NARRATIVE: CASE EVENT DATE: 20170501
